FAERS Safety Report 15558804 (Version 9)
Quarter: 2025Q2

REPORT INFORMATION
  Report Type: Spontaneous
  Country: US (occurrence: US)
  Receive Date: 20181029
  Receipt Date: 20250531
  Transmission Date: 20250717
  Serious: No
  Sender: AMGEN
  Company Number: US-AMGEN-USASP2018149920

PATIENT
  Age: 71 Year
  Sex: Female
  Weight: 79 kg

DRUGS (3)
  1. ENBREL [Suspect]
     Active Substance: ETANERCEPT
     Indication: Product used for unknown indication
     Route: 065
  2. TORSEMIDE [Concomitant]
     Active Substance: TORSEMIDE
  3. XELJANZ [Concomitant]
     Active Substance: TOFACITINIB CITRATE

REACTIONS (3)
  - Drug hypersensitivity [Not Recovered/Not Resolved]
  - Ear infection [Unknown]
  - Sinusitis [Unknown]
